FAERS Safety Report 21103376 (Version 1)
Quarter: 2022Q3

REPORT INFORMATION
  Report Type: Spontaneous
  Country: FR (occurrence: FR)
  Receive Date: 20220720
  Receipt Date: 20220720
  Transmission Date: 20221027
  Serious: Yes (Death, Other)
  Sender: FDA-Public Use
  Company Number: FR-GW PHARMA-2022-FR-021791

PATIENT
  Age: 13 Year
  Sex: Female
  Weight: 40 kg

DRUGS (7)
  1. MELATONIN [Suspect]
     Active Substance: MELATONIN
     Indication: Sleep disorder
     Dosage: 4 MILLIGRAM
     Route: 065
     Dates: start: 2021
  2. CANNABIDIOL [Suspect]
     Active Substance: CANNABIDIOL
     Indication: Lennox-Gastaut syndrome
     Dosage: 4 MILLILITER, ONCE A DAY
     Route: 065
     Dates: start: 20211118
  3. CANNABIDIOL [Suspect]
     Active Substance: CANNABIDIOL
     Dosage: 10 MILLIGRAM
     Route: 065
     Dates: start: 20211118
  4. INOVELON [Suspect]
     Active Substance: RUFINAMIDE
     Indication: Epilepsy
     Dosage: 16 MILLILITER
     Route: 065
     Dates: start: 201407
  5. LAMICTAL [Suspect]
     Active Substance: LAMOTRIGINE
     Indication: Epilepsy
     Dosage: 200 MILLIGRAM
     Route: 065
     Dates: start: 201312
  6. VALPROATE SODIUM [Suspect]
     Active Substance: VALPROATE SODIUM
     Indication: Epilepsy
     Dosage: 600 MILLIGRAM
     Route: 065
     Dates: start: 201309
  7. RIVOTRIL [Suspect]
     Active Substance: CLONAZEPAM
     Indication: Epilepsy
     Dosage: 7 GRAM
     Route: 065
     Dates: start: 201407

REACTIONS (1)
  - Sudden unexplained death in epilepsy [Fatal]

NARRATIVE: CASE EVENT DATE: 20220311
